FAERS Safety Report 10257286 (Version 1)
Quarter: 2014Q2

REPORT INFORMATION
  Report Type: Spontaneous
  Country: ES (occurrence: ES)
  Receive Date: 20140625
  Receipt Date: 20140625
  Transmission Date: 20141212
  Serious: Yes (Hospitalization)
  Sender: FDA-Public Use
  Company Number: ES-ACCORD-024410

PATIENT
  Age: 52 Year
  Sex: Female

DRUGS (9)
  1. SIMVASTATIN [Suspect]
     Indication: LIPIDS
     Dates: start: 20111115
  2. LAMIVUDINE [Concomitant]
  3. DARUNAVIR [Concomitant]
     Dosage: EVERY 12 HOURS
  4. CLONAZEPAM [Concomitant]
     Dosage: 0.125 MG Q 12 H
  5. VALPROIC ACID [Concomitant]
     Dosage: EVERY 12 HOURS
  6. LANTUS [Concomitant]
     Dosage: AT NIGHT
  7. RALTEGRAVIR [Concomitant]
     Dosage: 400 MG W/12 H AS TAR
  8. ALPRAZOLAM [Concomitant]
     Dosage: 0.25 MG W/24 HOUR
  9. RITONAVIR [Interacting]
     Indication: HIV INFECTION
     Dosage: EVERY 12 HOUR

REACTIONS (4)
  - Drug interaction [Recovered/Resolved]
  - Rhabdomyolysis [Recovered/Resolved]
  - Hepatotoxicity [Recovered/Resolved]
  - Renal failure acute [Recovered/Resolved]
